FAERS Safety Report 4993417-8 (Version None)
Quarter: 2006Q2

REPORT INFORMATION
  Report Type: 
  Country: None (occurrence: None)
  Receive Date: 20060505
  Receipt Date: 20060124
  Transmission Date: 20061013
  Serious: Yes (Other)
  Sender: FDA-Public Use
  Company Number: PHHO2006BR01675

PATIENT
  Age: 52 Year
  Sex: Female
  Weight: 64 kg

DRUGS (4)
  1. ZELMAC / HTF 919A [Suspect]
     Indication: HERNIA
     Dosage: NO TREATMENT
  2. ZELMAC / HTF 919A [Suspect]
     Dosage: 0.5 TABLET BID
     Route: 048
  3. ZELMAC / HTF 919A [Suspect]
     Dosage: UNK, BID
     Route: 048
     Dates: start: 20051201
  4. PURAN T4 [Concomitant]
     Indication: HYPOTHYROIDISM

REACTIONS (2)
  - DIARRHOEA [None]
  - WEIGHT DECREASED [None]
